FAERS Safety Report 12707865 (Version 2)
Quarter: 2016Q3

REPORT INFORMATION
  Report Type: Report from Study
  Country: NZ (occurrence: NZ)
  Receive Date: 20160901
  Receipt Date: 20160922
  Transmission Date: 20161109
  Serious: Yes (Death, Life-Threatening, Hospitalization, Other)
  Sender: FDA-Public Use
  Company Number: NZ-ABBVIE-16K-118-1715482-00

PATIENT
  Age: 69 Year
  Sex: Female

DRUGS (3)
  1. HUMIRA [Suspect]
     Active Substance: ADALIMUMAB
     Indication: RHEUMATOID ARTHRITIS
     Route: 058
     Dates: start: 20160713, end: 20160810
  2. ARAVA [Concomitant]
     Active Substance: LEFLUNOMIDE
     Indication: PRODUCT USED FOR UNKNOWN INDICATION
  3. METHOTREXATE. [Concomitant]
     Active Substance: METHOTREXATE
     Indication: PRODUCT USED FOR UNKNOWN INDICATION

REACTIONS (6)
  - Interstitial lung disease [Not Recovered/Not Resolved]
  - Death [Fatal]
  - Malaise [Not Recovered/Not Resolved]
  - Hospitalisation [Unknown]
  - Dyspnoea [Unknown]
  - Terminal state [Unknown]

NARRATIVE: CASE EVENT DATE: 2016
